FAERS Safety Report 7035161-1 (Version None)
Quarter: 2010Q4

REPORT INFORMATION
  Report Type: 
  Country: None (occurrence: None)
  Receive Date: 20101008
  Receipt Date: 20100929
  Transmission Date: 20110411
  Serious: Yes (Other)
  Sender: FDA-Public Use
  Company Number: JP-BAYER-201014124BYL

PATIENT
  Age: 79 Year
  Sex: Female

DRUGS (4)
  1. NEXAVAR [Suspect]
     Indication: RENAL CELL CARCINOMA
     Dosage: TOTAL DAILY DOSE: 400 MG  UNIT DOSE: 200 MG
     Route: 048
     Dates: start: 20100326, end: 20100607
  2. LORCAM [Concomitant]
     Indication: PALLIATIVE CARE
     Dosage: UNIT DOSE: 4 MG
     Route: 048
     Dates: start: 20100323, end: 20100607
  3. ISALON [Concomitant]
     Dosage: UNIT DOSE: 100 MG
     Route: 048
     Dates: start: 20100326
  4. OMEPRAL [Concomitant]
     Indication: PALLIATIVE CARE
     Dosage: UNIT DOSE: 10 MG
     Route: 048
     Dates: start: 20100412, end: 20100607

REACTIONS (1)
  - RENAL INFARCT [None]
